FAERS Safety Report 24162638 (Version 1)
Quarter: 2024Q3

REPORT INFORMATION
  Report Type: Spontaneous
  Country: US (occurrence: US)
  Receive Date: 20240801
  Receipt Date: 20240801
  Transmission Date: 20241017
  Serious: Yes (Hospitalization, Other)
  Sender: STEMLINE THERAPEUTICS
  Company Number: US-Stemline Therapeutics, Inc.-2024ST004582

PATIENT
  Age: 80 Year
  Sex: Female

DRUGS (2)
  1. ORSERDU [Suspect]
     Active Substance: ELACESTRANT
     Indication: Product used for unknown indication
     Dosage: 345 MG
     Route: 048
  2. IMDELLTRA [Concomitant]
     Active Substance: TARLATAMAB-DLLE
     Indication: Product used for unknown indication

REACTIONS (5)
  - Pericardial effusion [Unknown]
  - Body temperature increased [Unknown]
  - Vomiting projectile [Unknown]
  - Chills [Unknown]
  - Cough [Unknown]
